FAERS Safety Report 6186554-6 (Version None)
Quarter: 2009Q2

REPORT INFORMATION
  Report Type: 
  Country: None (occurrence: None)
  Receive Date: 20090512
  Receipt Date: 20090504
  Transmission Date: 20091009
  Serious: No
  Sender: FDA-Public Use
  Company Number: PHEH2009US04421

PATIENT
  Sex: Female
  Weight: 58.5 kg

DRUGS (7)
  1. TASIGNA [Suspect]
     Indication: CHRONIC MYELOID LEUKAEMIA
     Dosage: 400 MG, BID
     Route: 048
     Dates: start: 20090313, end: 20090321
  2. DEPO-PROVERA [Concomitant]
  3. WELLBUTRIN XL [Concomitant]
     Indication: DEPRESSION
     Dosage: 150 MG, BID
     Route: 048
     Dates: start: 20081201
  4. ZOFRAN [Concomitant]
     Indication: NAUSEA
     Dosage: 8 MG PRN
     Route: 048
     Dates: start: 20081101
  5. ZOLOFT [Concomitant]
     Indication: DEPRESSION
     Dosage: UNK
     Dates: start: 20090101
  6. OXYCONTIN [Concomitant]
     Indication: PAIN
     Dosage: 10 MG PRN
     Dates: start: 20081101
  7. VICODIN [Concomitant]
     Indication: PAIN
     Dosage: 5/500 MG PRN
     Route: 048
     Dates: start: 20081101

REACTIONS (1)
  - BLOOD CREATININE INCREASED [None]
